FAERS Safety Report 20646313 (Version 2)
Quarter: 2022Q3

REPORT INFORMATION
  Report Type: Spontaneous
  Country: US (occurrence: US)
  Receive Date: 20220329
  Receipt Date: 20220827
  Transmission Date: 20221026
  Serious: Yes (Other)
  Sender: FDA-Public Use
  Company Number: US-SA-SAC20220324001706

PATIENT
  Age: 68 Year
  Sex: Male

DRUGS (1)
  1. ZANTAC [Suspect]
     Active Substance: RANITIDINE HYDROCHLORIDE
     Indication: Gastrooesophageal reflux disease
     Dosage: UNK, QD
     Route: 065
     Dates: start: 199805, end: 202001

REACTIONS (3)
  - Oesophageal carcinoma [Recovering/Resolving]
  - Prostate cancer stage III [Recovering/Resolving]
  - Throat cancer [Unknown]

NARRATIVE: CASE EVENT DATE: 20150101
